FAERS Safety Report 17456421 (Version 4)
Quarter: 2020Q3

REPORT INFORMATION
  Report Type: Spontaneous
  Country: US (occurrence: US)
  Receive Date: 20200225
  Receipt Date: 20200825
  Transmission Date: 20201102
  Serious: Yes (Other)
  Sender: FDA-Public Use
  Company Number: US-PFIZER INC-2020079987

PATIENT
  Age: 43 Year
  Sex: Male

DRUGS (1)
  1. XELJANZ XR [Suspect]
     Active Substance: TOFACITINIB CITRATE
     Indication: RHEUMATOID ARTHRITIS
     Dosage: 11 MG, 1X/DAY
     Route: 048
     Dates: start: 201912

REACTIONS (10)
  - Dysgeusia [Unknown]
  - Drug ineffective [Unknown]
  - Off label use [Unknown]
  - Dizziness [Recovered/Resolved]
  - Nausea [Unknown]
  - Condition aggravated [Unknown]
  - Ear infection [Unknown]
  - Sinusitis [Not Recovered/Not Resolved]
  - Candida infection [Unknown]
  - Depression [Unknown]
